FAERS Safety Report 6336972-8 (Version None)
Quarter: 2009Q3

REPORT INFORMATION
  Report Type: 
  Country: None (occurrence: None)
  Receive Date: 20090901
  Receipt Date: 20090824
  Transmission Date: 20100115
  Serious: Yes (Other)
  Sender: FDA-Public Use
  Company Number: US-SANOFI-SYNTHELABO-A03200903792

PATIENT
  Sex: Female

DRUGS (2)
  1. MULTAQ [Suspect]
     Indication: ARRHYTHMIA
     Dosage: UNK
     Route: 048
     Dates: start: 20090801, end: 20090801
  2. MULTAQ [Suspect]
     Route: 048
     Dates: start: 20090801

REACTIONS (7)
  - ARRHYTHMIA [None]
  - DIARRHOEA [None]
  - FALL [None]
  - INCORRECT DOSE ADMINISTERED [None]
  - JOINT INJURY [None]
  - SYNCOPE [None]
  - VOMITING [None]
